FAERS Safety Report 25663879 (Version 2)
Quarter: 2025Q4

REPORT INFORMATION
  Report Type: Spontaneous
  Country: EU (occurrence: EU)
  Receive Date: 20250811
  Receipt Date: 20251117
  Transmission Date: 20260117
  Serious: Yes (Other)
  Sender: JOHNSON AND JOHNSON
  Company Number: EU-JNJFOC-20250226613

PATIENT
  Sex: Male

DRUGS (3)
  1. RYBREVANT [Suspect]
     Active Substance: AMIVANTAMAB-VMJW
     Indication: Non-small cell lung cancer metastatic
     Dosage: DATE OF LAST INFUSION- 14-FEB-2025
  2. RYBREVANT [Suspect]
     Active Substance: AMIVANTAMAB-VMJW
  3. RYBREVANT [Suspect]
     Active Substance: AMIVANTAMAB-VMJW

REACTIONS (3)
  - Pulmonary toxicity [Unknown]
  - Off label use [Unknown]
  - Adverse reaction [Unknown]
